FAERS Safety Report 8084320-8 (Version None)
Quarter: 2012Q1

REPORT INFORMATION
  Report Type: 
  Country: None (occurrence: None)
  Receive Date: 20120128
  Receipt Date: 20110129
  Transmission Date: 20120608
  Serious: No
  Sender: FDA-Public Use
  Company Number: US-ABBOTT-11P-163-0701559-00

PATIENT
  Sex: Female

DRUGS (2)
  1. ALBUTEROL [Concomitant]
     Indication: PRODUCT USED FOR UNKNOWN INDICATION
  2. HUMIRA [Suspect]
     Indication: CROHN'S DISEASE
     Dates: start: 20101201

REACTIONS (5)
  - DYSPNOEA [None]
  - ASTHMA [None]
  - INJECTION SITE REACTION [None]
  - INJECTION SITE HAEMATOMA [None]
  - CHEST PAIN [None]
